FAERS Safety Report 24453037 (Version 1)
Quarter: 2024Q4

REPORT INFORMATION
  Report Type: Spontaneous
  Country: US (occurrence: US)
  Receive Date: 20241017
  Receipt Date: 20241017
  Transmission Date: 20250115
  Serious: Yes (Hospitalization)
  Sender: SUNOVION
  Company Number: US-UROVANT SCIENCES GMBH-202406-URV-000966

PATIENT
  Sex: Female
  Weight: 98.866 kg

DRUGS (1)
  1. GEMTESA [Suspect]
     Active Substance: VIBEGRON
     Indication: Hypertonic bladder
     Dosage: 75 MILLIGRAM, QD
     Route: 048

REACTIONS (3)
  - Urinary tract infection [Unknown]
  - Gait inability [Unknown]
  - Product availability issue [Unknown]
